FAERS Safety Report 16739088 (Version 2)
Quarter: 2020Q1

REPORT INFORMATION
  Report Type: Spontaneous
  Country: US (occurrence: US)
  Receive Date: 20190826
  Receipt Date: 20200206
  Transmission Date: 20200409
  Serious: No
  Sender: FDA-Public Use
  Company Number: US-ASTRAZENECA-2019SF09924

PATIENT
  Age: 678 Month
  Sex: Female
  Weight: 83.9 kg

DRUGS (1)
  1. BYDUREON BCISE [Suspect]
     Active Substance: EXENATIDE
     Indication: TYPE 2 DIABETES MELLITUS
     Route: 058
     Dates: start: 201903

REACTIONS (9)
  - Diarrhoea [Unknown]
  - Product dose omission [Unknown]
  - Injection site bruising [Unknown]
  - Abdominal discomfort [Unknown]
  - Injection site pain [Unknown]
  - Drug delivery system malfunction [Unknown]
  - Blood glucose increased [Unknown]
  - Abdominal pain upper [Unknown]
  - Device leakage [Unknown]

NARRATIVE: CASE EVENT DATE: 201903
